FAERS Safety Report 6179592-0 (Version None)
Quarter: 2009Q2

REPORT INFORMATION
  Report Type: 
  Country: None (occurrence: None)
  Receive Date: 20090505
  Receipt Date: 20090424
  Transmission Date: 20091009
  Serious: Yes (Hospitalization)
  Sender: FDA-Public Use
  Company Number: ES-ELI_LILLY_AND_COMPANY-ES200904006308

PATIENT
  Age: 63 Year
  Sex: Female

DRUGS (1)
  1. FORTEO [Suspect]
     Indication: OSTEOPOROSIS
     Dosage: 20 UG, UNK
     Route: 058
     Dates: start: 20081201, end: 20090201

REACTIONS (6)
  - DYSPHAGIA [None]
  - NAUSEA [None]
  - OROPHARYNGEAL PAIN [None]
  - PHARYNGITIS [None]
  - THROAT CANCER [None]
  - VOMITING [None]
